FAERS Safety Report 10457215 (Version 2)
Quarter: 2015Q1

REPORT INFORMATION
  Report Type: Spontaneous
  Country: FR (occurrence: FR)
  Receive Date: 20140916
  Receipt Date: 20150130
  Transmission Date: 20150720
  Serious: Yes (Life-Threatening, Hospitalization, Other)
  Sender: FDA-Public Use
  Company Number: FR-ELI_LILLY_AND_COMPANY-FR201409003060

PATIENT
  Sex: Female

DRUGS (8)
  1. GEMZAR [Suspect]
     Active Substance: GEMCITABINE HYDROCHLORIDE
     Indication: ADENOCARCINOMA PANCREAS
     Dosage: 1520 MG, CYCLICAL
     Route: 042
     Dates: start: 20140505, end: 20140629
  2. LERCAN [Concomitant]
     Active Substance: LERCANIDIPINE
  3. FORTIMEL [Concomitant]
     Active Substance: DIETARY SUPPLEMENT
  4. INEXIUM                            /01479302/ [Concomitant]
     Active Substance: ESOMEPRAZOLE MAGNESIUM
  5. LEVOTHYROX [Concomitant]
     Active Substance: LEVOTHYROXINE
  6. INSULIN LISPRO [Concomitant]
     Active Substance: INSULIN LISPRO
  7. COVERSYL                           /00790702/ [Concomitant]
     Active Substance: PERINDOPRIL
  8. LANTUS [Concomitant]
     Active Substance: INSULIN GLARGINE

REACTIONS (9)
  - Hypertensive crisis [Unknown]
  - Normochromic normocytic anaemia [Unknown]
  - Confusional state [Unknown]
  - General physical health deterioration [Unknown]
  - Thrombotic microangiopathy [Not Recovered/Not Resolved]
  - Renal failure [Unknown]
  - Vomiting [Unknown]
  - Renal tubular necrosis [Unknown]
  - Thrombocytopenia [Unknown]
